FAERS Safety Report 10721712 (Version 1)
Quarter: 2015Q1

REPORT INFORMATION
  Report Type: Spontaneous
  Country: PL (occurrence: PL)
  Receive Date: 20150119
  Receipt Date: 20150119
  Transmission Date: 20150721
  Serious: Yes (Hospitalization, Other)
  Sender: FDA-Public Use
  Company Number: PL-MYLANLABS-2015M1000786

PATIENT

DRUGS (4)
  1. BROMOCRIPTINE [Suspect]
     Active Substance: BROMOCRIPTINE
     Dosage: 5MG PER DAY
     Route: 065
  2. CLOMIFENE [Suspect]
     Active Substance: CLOMIPHENE
     Indication: OVULATION INDUCTION
     Dosage: APPLIED SEVERAL TIMES
     Route: 065
  3. CLOMIFENE [Suspect]
     Active Substance: CLOMIPHENE
     Dosage: 50MG; RECEIVED FROM 3RD TO 9TH DAY OF STIMULATION CYCLE
     Route: 065
  4. BROMOCRIPTINE [Suspect]
     Active Substance: BROMOCRIPTINE
     Indication: HYPERPROLACTINAEMIA
     Dosage: UP TO 7.5MG/DAY
     Route: 065

REACTIONS (11)
  - Suicidal ideation [Recovered/Resolved]
  - Depressed mood [None]
  - Treatment failure [None]
  - Maternal exposure before pregnancy [None]
  - Sleep disorder [None]
  - Pregnancy [None]
  - Eating disorder [None]
  - Persecutory delusion [None]
  - Psychotic disorder [Recovered/Resolved]
  - Anxiety [None]
  - Sluggishness [None]
